FAERS Safety Report 20705119 (Version 6)
Quarter: 2022Q3

REPORT INFORMATION
  Report Type: Spontaneous
  Country: CA (occurrence: CA)
  Receive Date: 20220413
  Receipt Date: 20220926
  Transmission Date: 20221026
  Serious: Yes (Other)
  Sender: FDA-Public Use
  Company Number: CA-PFIZER INC-2021183576

PATIENT
  Age: 63 Year
  Sex: Male
  Weight: 67.5 kg

DRUGS (6)
  1. RUXIENCE [Suspect]
     Active Substance: RITUXIMAB-PVVR
     Indication: Microscopic polyangiitis
     Dosage: 690 MG (FIRST DOSE IN HOSPITAL)
     Route: 041
     Dates: start: 20201205, end: 20201205
  2. RUXIENCE [Suspect]
     Active Substance: RITUXIMAB-PVVR
     Indication: Granulomatosis with polyangiitis
     Dosage: 690 MG (2ND DOSE)
     Route: 041
     Dates: start: 20210217, end: 20210217
  3. RUXIENCE [Suspect]
     Active Substance: RITUXIMAB-PVVR
     Dosage: 690 MG, WEEKLY (3RD DOSE)
     Route: 041
     Dates: start: 20210224, end: 20210224
  4. RUXIENCE [Suspect]
     Active Substance: RITUXIMAB-PVVR
     Dosage: 690 MG, WEEKLY (4TH DOSE; 4 DOSES TOTAL)
     Route: 041
     Dates: start: 20210303, end: 20210303
  5. RUXIENCE [Suspect]
     Active Substance: RITUXIMAB-PVVR
     Dosage: 500 MG, EVERY 6 MONTHS MAINTENANCE DOSING
     Route: 041
     Dates: start: 20210914, end: 20210914
  6. RUXIENCE [Suspect]
     Active Substance: RITUXIMAB-PVVR
     Dosage: 500 MG, EVERY 6 MONTHS MAINTENANCE DOSING
     Route: 041
     Dates: start: 20220418, end: 20220418

REACTIONS (6)
  - Renal transplant [Unknown]
  - Off label use [Unknown]
  - Intentional product use issue [Unknown]
  - Off label use [Unknown]
  - Inappropriate schedule of product administration [Unknown]
  - Insomnia [Unknown]

NARRATIVE: CASE EVENT DATE: 20210217
